FAERS Safety Report 6243825-2 (Version None)
Quarter: 2009Q2

REPORT INFORMATION
  Report Type: 
  Country: None (occurrence: None)
  Receive Date: 20090624
  Receipt Date: 20090619
  Transmission Date: 20091009
  Serious: Yes (Other)
  Sender: FDA-Public Use
  Company Number: US-ALLERGAN-0908566US

PATIENT
  Sex: Female

DRUGS (1)
  1. COMBIGAN [Suspect]
     Indication: INTRAOCULAR PRESSURE INCREASED
     Dosage: 1 GTT, BID
     Route: 047
     Dates: start: 20090615, end: 20090617

REACTIONS (6)
  - BLOOD PRESSURE DECREASED [None]
  - DIZZINESS [None]
  - FACE INJURY [None]
  - LOSS OF CONSCIOUSNESS [None]
  - MUSCULOSKELETAL STIFFNESS [None]
  - TOOTH FRACTURE [None]
